FAERS Safety Report 8578736-0 (Version None)
Quarter: 2012Q3

REPORT INFORMATION
  Report Type: 
  Country: None (occurrence: None)
  Receive Date: 20120726
  Receipt Date: 20120716
  Transmission Date: 20120928
  Serious: Yes (Hospitalization)
  Sender: FDA-Public Use
  Company Number: DKLU1082709

PATIENT
  Age: 13 Month
  Sex: Male

DRUGS (9)
  1. SABRIL [Suspect]
     Indication: INFANTILE SPASMS
     Dosage: SEE IMAGE ORAL
     Route: 048
     Dates: start: 20110902
  2. SABRIL [Suspect]
     Indication: INFANTILE SPASMS
     Dosage: SEE IMAGE ORAL
     Route: 048
     Dates: start: 20111019
  3. SABRIL [Suspect]
     Indication: INFANTILE SPASMS
     Dosage: SEE IMAGE ORAL
     Route: 048
     Dates: start: 20120626
  4. SABRIL [Suspect]
     Indication: INFANTILE SPASMS
     Dosage: SEE IMAGE ORAL
     Route: 048
     Dates: start: 20120626
  5. LEUCOVORIN (FOLINIC ACID) [Concomitant]
  6. BANZEL [Suspect]
     Indication: PRODUCT USED FOR UNKNOWN INDICATION
  7. KEPPRA [Concomitant]
  8. PHENOBARBITAL TAB [Concomitant]
  9. VITAMIN B6 [Concomitant]

REACTIONS (3)
  - PNEUMONIA ASPIRATION [None]
  - VOMITING [None]
  - DEHYDRATION [None]
